FAERS Safety Report 6887376-0 (Version None)
Quarter: 2010Q3

REPORT INFORMATION
  Report Type: 
  Country: None (occurrence: None)
  Receive Date: 20100730
  Receipt Date: 20091202
  Transmission Date: 20110219
  Serious: No
  Sender: FDA-Public Use
  Company Number: A0832869A

PATIENT
  Sex: Male

DRUGS (6)
  1. IMITREX [Suspect]
     Indication: MIGRAINE
     Dosage: 25MG AS REQUIRED
     Route: 048
     Dates: start: 19950101
  2. IMITREX [Suspect]
     Route: 045
  3. TYLENOL W/ CODEINE [Concomitant]
  4. ERCAF [Concomitant]
  5. CAFFEINE [Concomitant]
  6. BARBITURATES (UNSPECIFIED) [Concomitant]

REACTIONS (3)
  - ABDOMINAL DISCOMFORT [None]
  - NASAL DISCOMFORT [None]
  - NAUSEA [None]
